FAERS Safety Report 9002156 (Version 1)
Quarter: 2013Q1

REPORT INFORMATION
  Report Type: Spontaneous
  Country: US (occurrence: None)
  Receive Date: 20130103
  Receipt Date: 20130103
  Transmission Date: 20140127
  Serious: Yes (Hospitalization)
  Sender: FDA-Public Use
  Company Number: None

PATIENT
  Age: 54 Year
  Sex: Male
  Weight: 93 kg

DRUGS (2)
  1. CEFTAZIDIME [Suspect]
     Route: 042
     Dates: start: 20121221, end: 20121228
  2. PANTOPRAZOLE [Suspect]
     Dates: start: 20121217, end: 20121228

REACTIONS (1)
  - Renal failure acute [None]
